FAERS Safety Report 7511607-7 (Version None)
Quarter: 2011Q2

REPORT INFORMATION
  Report Type: 
  Country: None (occurrence: None)
  Receive Date: 20110531
  Receipt Date: 20110525
  Transmission Date: 20111010
  Serious: Yes (Other)
  Sender: FDA-Public Use
  Company Number: JP-PFIZER INC-2011100329

PATIENT
  Age: 52 Year
  Sex: Male

DRUGS (6)
  1. METHYCOBAL [Concomitant]
     Dosage: UNK
     Route: 048
  2. TEGRETOL [Concomitant]
     Dosage: UNK
  3. LYRICA [Suspect]
     Indication: POST HERPETIC NEURALGIA
     Dosage: 300 MG DAILY
     Route: 048
     Dates: start: 20110301
  4. SELBEX [Concomitant]
     Dosage: UNK
     Route: 048
  5. NEUROTROPIN [Concomitant]
     Dosage: UNK
     Route: 048
  6. LOXONIN [Concomitant]
     Dosage: UNK
     Route: 048

REACTIONS (4)
  - RED BLOOD CELL COUNT DECREASED [None]
  - NEOPLASM MALIGNANT [None]
  - WHITE BLOOD CELL COUNT INCREASED [None]
  - PLATELET COUNT INCREASED [None]
